FAERS Safety Report 5095116-3 (Version None)
Quarter: 2006Q3

REPORT INFORMATION
  Report Type: 
  Country: None (occurrence: None)
  Receive Date: 20060901
  Receipt Date: 20060816
  Transmission Date: 20061208
  Serious: Yes (Death, Hospitalization)
  Sender: FDA-Public Use
  Company Number: PHRM2006FR02329

PATIENT
  Age: 64 Year
  Sex: Female

DRUGS (14)
  1. ZOMETA [Suspect]
     Indication: METASTASES TO BONE
     Dosage: 4 MG, QMO
     Route: 042
     Dates: start: 20060624, end: 20060624
  2. MOTILIUM ^JANSSEN^ [Suspect]
     Dosage: 3 DF DAILY
     Route: 048
     Dates: start: 20060630, end: 20060703
  3. GAVISCON                                /GFR/ [Suspect]
     Dosage: 3 DF DAILY
     Route: 048
     Dates: start: 20060630, end: 20060703
  4. MOPRAL [Suspect]
     Dosage: 20 MG DAILY
     Route: 048
  5. COLTRAMYL [Suspect]
     Dosage: 8 MG DAILY
     Route: 048
     Dates: start: 20060629, end: 20060630
  6. MYOLASTAN [Suspect]
     Dosage: 50 MG DAILY
     Route: 048
     Dates: start: 20060630, end: 20060702
  7. BIPRETERAX [Concomitant]
  8. MONO-TILDIEM [Concomitant]
  9. HYPERIUM [Concomitant]
  10. VASTEN [Concomitant]
  11. DIAMICRON [Concomitant]
  12. LAROXYL [Concomitant]
  13. LASILIX [Concomitant]
  14. SYMBICORT [Concomitant]

REACTIONS (4)
  - BLOOD CREATININE INCREASED [None]
  - DEPRESSED LEVEL OF CONSCIOUSNESS [None]
  - RENAL FAILURE ACUTE [None]
  - SEPTIC SHOCK [None]
